FAERS Safety Report 17928125 (Version 1)
Quarter: 2020Q2

REPORT INFORMATION
  Report Type: Spontaneous
  Country: CA (occurrence: CA)
  Receive Date: 20200623
  Receipt Date: 20200623
  Transmission Date: 20200714
  Serious: Yes (Other)
  Sender: FDA-Public Use
  Company Number: CA-ABBVIE-20K-028-3453453-00

PATIENT
  Age: 30 Year
  Sex: Female

DRUGS (2)
  1. ORILISSA [Suspect]
     Active Substance: ELAGOLIX SODIUM
     Indication: PRODUCT USED FOR UNKNOWN INDICATION
     Route: 048
  2. LUPRON DEPOT [Suspect]
     Active Substance: LEUPROLIDE ACETATE
     Indication: ENDOMETRIOSIS
     Route: 030

REACTIONS (12)
  - Dyschezia [Unknown]
  - Nausea [Unknown]
  - Pain [Unknown]
  - Hysterectomy [Unknown]
  - Dysmenorrhoea [Unknown]
  - Dysmenorrhoea [Recovered/Resolved]
  - Endometriosis [Unknown]
  - Premenstrual syndrome [Recovering/Resolving]
  - Pain in extremity [Unknown]
  - Hyperaesthesia [Unknown]
  - Abdominal pain [Unknown]
  - Hypoaesthesia [Unknown]
